FAERS Safety Report 9548860 (Version 2)
Quarter: 2013Q3

REPORT INFORMATION
  Report Type: Spontaneous
  Country: ES (occurrence: ES)
  Receive Date: 20130924
  Receipt Date: 20130925
  Transmission Date: 20140515
  Serious: Yes (Other)
  Sender: FDA-Public Use
  Company Number: ES-PFIZER INC-2013273129

PATIENT
  Age: 82 Year
  Sex: Male

DRUGS (7)
  1. TOVIAZ [Suspect]
     Dosage: 4 MG/DAY
     Route: 048
     Dates: end: 20130412
  2. TOVIAZ [Suspect]
     Dosage: 8 MG/DAY
     Route: 048
     Dates: start: 20130412, end: 201304
  3. ZOLPIDEM [Concomitant]
     Dosage: 10 MG/DAY
     Route: 048
  4. IRBESARTAN [Concomitant]
     Dosage: 150 MG/DAY
     Route: 048
  5. SIMVASTATIN [Concomitant]
     Dosage: 20 MG/DAY
     Route: 048
  6. DILTIAZEM [Concomitant]
     Dosage: 240 MG/DAY
     Route: 048
  7. PLUSVENT [Concomitant]
     Dosage: UNK
     Route: 055

REACTIONS (1)
  - Nasal polyps [Unknown]
